FAERS Safety Report 7364759-6 (Version None)
Quarter: 2011Q1

REPORT INFORMATION
  Report Type: 
  Country: None (occurrence: None)
  Receive Date: 20110316
  Receipt Date: 20110316
  Transmission Date: 20110831
  Serious: Yes (Death)
  Sender: FDA-Public Use
  Company Number: None

PATIENT
  Age: 75 Year
  Sex: Male

DRUGS (9)
  1. NOVOLIN R [Concomitant]
  2. ARIXTRA [Concomitant]
  3. BIAXAN [Concomitant]
  4. REVLIMID [Suspect]
     Indication: MULTIPLE MYELOMA
     Dosage: REVLIMID 20MG/D ORALLY
     Route: 048
     Dates: start: 20080401, end: 20100301
  5. DEXAMETHASONE [Concomitant]
  6. MORPHINE [Concomitant]
  7. AREDIA [Concomitant]
  8. FUROSEMIDE [Concomitant]
  9. IPRATROPIUM BROMIDE [Concomitant]

REACTIONS (5)
  - ARTHRALGIA [None]
  - MULTIPLE MYELOMA [None]
  - NEOPLASM MALIGNANT [None]
  - PLASMACYTOMA [None]
  - METASTASES TO BONE [None]
